FAERS Safety Report 6337469-1 (Version None)
Quarter: 2009Q3

REPORT INFORMATION
  Report Type: 
  Country: None (occurrence: None)
  Receive Date: 20090901
  Receipt Date: 20090901
  Transmission Date: 20100115
  Serious: Yes (Hospitalization)
  Sender: FDA-Public Use
  Company Number: None

PATIENT
  Age: 83 Year
  Sex: Female

DRUGS (12)
  1. ALIMTA [Suspect]
     Indication: LUNG NEOPLASM MALIGNANT
     Dosage: 2 CYCLES
  2. PLAVIX [Concomitant]
  3. PRILOSEC [Concomitant]
  4. HYZAAR [Concomitant]
  5. VITAMIN D [Concomitant]
  6. LORAZEPAM [Concomitant]
  7. TRAZODONE HCL [Concomitant]
  8. CELEXA [Concomitant]
  9. ALPHAGAN P [Concomitant]
  10. DEXAMETHASONE [Concomitant]
  11. COMPAZINE [Concomitant]
  12. LIPITOR [Concomitant]

REACTIONS (2)
  - DRUG ERUPTION [None]
  - PEMPHIGOID [None]
